FAERS Safety Report 4976100-4 (Version None)
Quarter: 2006Q2

REPORT INFORMATION
  Report Type: 
  Country: None (occurrence: None)
  Receive Date: 20060411
  Receipt Date: 20060323
  Transmission Date: 20061013
  Serious: No
  Sender: FDA-Public Use
  Company Number: US200603005888

PATIENT
  Age: 52 Year
  Sex: Male

DRUGS (7)
  1. ZYPREXA [Suspect]
     Dosage: 10 MG, 2/D, INTRAMUSCULAR
     Route: 030
     Dates: start: 20050701
  2. ZYPREXA ZYDIS [Suspect]
     Dosage: ORAL
     Route: 048
     Dates: end: 20050722
  3. DEPAKOTE [Concomitant]
  4. SEROQUEL [Concomitant]
  5. METHYLPHENIDATE HCL [Concomitant]
  6. REGLAN /USA/ (METOCLOPRAMIDE HYDROCHLORIDE) [Concomitant]
  7. PREVACID [Concomitant]

REACTIONS (15)
  - AGGRESSION [None]
  - AGITATION [None]
  - AMNESIA [None]
  - ANTICONVULSANT DRUG LEVEL INCREASED [None]
  - COGNITIVE DISORDER [None]
  - CONDITION AGGRAVATED [None]
  - DRUG EFFECT DECREASED [None]
  - HOSTILITY [None]
  - NEPHROLITHIASIS [None]
  - NERVOUS SYSTEM DISORDER [None]
  - PANIC ATTACK [None]
  - PHARMACEUTICAL PRODUCT COMPLAINT [None]
  - RED BLOOD CELLS URINE POSITIVE [None]
  - RENAL IMPAIRMENT [None]
  - URETERIC OBSTRUCTION [None]
